FAERS Safety Report 7924577-4 (Version None)
Quarter: 2011Q4

REPORT INFORMATION
  Report Type: 
  Country: None (occurrence: None)
  Receive Date: 20111117
  Receipt Date: 20110324
  Transmission Date: 20120403
  Serious: No
  Sender: FDA-Public Use
  Company Number: US-AMGEN-USASP2011015921

PATIENT
  Age: 37 Year
  Sex: Female

DRUGS (4)
  1. PREDNISONE TAB [Concomitant]
     Dosage: 1 MG, UNK
  2. MULTI-VITAMIN [Concomitant]
     Dosage: UNK
  3. NUVARING [Concomitant]
     Dosage: UNK
  4. ENBREL [Suspect]
     Indication: PRODUCT USED FOR UNKNOWN INDICATION
     Dosage: 50 MG, QWK
     Route: 058

REACTIONS (1)
  - LOWER RESPIRATORY TRACT INFECTION [None]
